FAERS Safety Report 14306929 (Version 4)
Quarter: 2018Q1

REPORT INFORMATION
  Report Type: Spontaneous
  Country: US (occurrence: US)
  Receive Date: 20171220
  Receipt Date: 20180130
  Transmission Date: 20180509
  Serious: Yes (Other)
  Sender: FDA-Public Use
  Company Number: US-CONCORDIA PHARMACEUTICALS INC.-GSH201707-004138

PATIENT
  Age: 22 Year
  Sex: Male

DRUGS (9)
  1. TRIAMCINOLONE [Concomitant]
     Active Substance: TRIAMCINOLONE
     Route: 061
  2. CLOBETASOL [Concomitant]
     Active Substance: CLOBETASOL
     Route: 061
  3. PLAQUENIL [Suspect]
     Active Substance: HYDROXYCHLOROQUINE SULFATE
     Indication: ERYTHEMA ANNULARE
     Route: 065
  4. METHOTREXATE. [Suspect]
     Active Substance: METHOTREXATE
     Indication: ERYTHEMA ANNULARE
     Route: 065
  5. MYCOPHENOLATE MOFETIL. [Suspect]
     Active Substance: MYCOPHENOLATE MOFETIL
     Route: 065
  6. MYCOPHENOLATE MOFETIL. [Suspect]
     Active Substance: MYCOPHENOLATE MOFETIL
     Indication: ERYTHEMA ANNULARE
     Route: 065
  7. DESOXIMETASONE. [Concomitant]
     Active Substance: DESOXIMETASONE
     Route: 061
  8. PREDNISONE. [Suspect]
     Active Substance: PREDNISONE
     Indication: ERYTHEMA ANNULARE
     Route: 048
  9. PREDNISONE. [Suspect]
     Active Substance: PREDNISONE
     Route: 048

REACTIONS (17)
  - Blood immunoglobulin G increased [Unknown]
  - Off label use [Unknown]
  - Joint swelling [Unknown]
  - Leukocytosis [Recovered/Resolved]
  - Rebound effect [Unknown]
  - Joint stiffness [Unknown]
  - Blood alkaline phosphatase increased [Unknown]
  - Alanine aminotransferase increased [Unknown]
  - Aspartate aminotransferase increased [Unknown]
  - Eosinophilia [Recovering/Resolving]
  - Condition aggravated [Unknown]
  - Blister [Unknown]
  - Smooth muscle antibody positive [Unknown]
  - Autoimmune hepatitis [Unknown]
  - Drug ineffective [Unknown]
  - Erythema annulare [Recovered/Resolved with Sequelae]
  - Post inflammatory pigmentation change [Unknown]
